FAERS Safety Report 13855279 (Version 2)
Quarter: 2017Q3

REPORT INFORMATION
  Report Type: Report from Study
  Country: US (occurrence: US)
  Receive Date: 20170810
  Receipt Date: 20170918
  Transmission Date: 20171127
  Serious: Yes (Other)
  Sender: FDA-Public Use
  Company Number: PHEH2017US024774

PATIENT
  Age: 16 Year
  Sex: Male
  Weight: 59 kg

DRUGS (2)
  1. ILARIS [Suspect]
     Active Substance: CANAKINUMAB
     Indication: STILL^S DISEASE
     Dosage: 150 MG, EVERY 28 DAYS (EVERY 4 WEEKS)
     Route: 058
     Dates: start: 20170706
  2. ILARIS [Suspect]
     Active Substance: CANAKINUMAB
     Indication: POLYARTHRITIS

REACTIONS (4)
  - Still^s disease [Unknown]
  - Arthralgia [Unknown]
  - Incorrect dose administered [Unknown]
  - Syringe issue [Unknown]

NARRATIVE: CASE EVENT DATE: 20170724
